FAERS Safety Report 7701712-4 (Version None)
Quarter: 2011Q3

REPORT INFORMATION
  Report Type: 
  Country: None (occurrence: None)
  Receive Date: 20110822
  Receipt Date: 20110812
  Transmission Date: 20111222
  Serious: Yes (Hospitalization)
  Sender: FDA-Public Use
  Company Number: US-VERTEX PHARMACEUTICALS INC.-AE-2011-000958

PATIENT
  Sex: Female
  Weight: 85.352 kg

DRUGS (5)
  1. PEGASYS [Concomitant]
     Indication: HEPATITIS C
     Route: 058
     Dates: start: 20110722
  2. MULTI-VITAMINS [Concomitant]
     Route: 048
  3. INCIVEK [Suspect]
     Indication: HEPATITIS C
     Route: 048
     Dates: start: 20110722
  4. RIBAVIRIN [Concomitant]
     Indication: HEPATITIS C
     Route: 048
     Dates: start: 20110722
  5. VITAMIN D [Concomitant]
     Route: 048

REACTIONS (6)
  - RASH [None]
  - NAUSEA [None]
  - DIZZINESS [None]
  - ANORECTAL DISCOMFORT [None]
  - VOMITING [None]
  - ANXIETY [None]
